FAERS Safety Report 21098696 (Version 1)
Quarter: 2022Q3

REPORT INFORMATION
  Report Type: Spontaneous
  Country: US (occurrence: None)
  Receive Date: 20220718
  Receipt Date: 20220718
  Transmission Date: 20221026
  Serious: No
  Sender: FDA-Public Use
  Company Number: None

PATIENT
  Age: 74 Year
  Sex: Female

DRUGS (1)
  1. ERLOTINIB [Suspect]
     Active Substance: ERLOTINIB
     Dosage: 100MG DAILY ORAL?
     Route: 048
     Dates: start: 2022

REACTIONS (6)
  - Fatigue [None]
  - Asthenia [None]
  - Hyperglycaemia [None]
  - Confusional state [None]
  - Fall [None]
  - Contusion [None]

NARRATIVE: CASE EVENT DATE: 20220704
